FAERS Safety Report 13552982 (Version 2)
Quarter: 2017Q2

REPORT INFORMATION
  Report Type: Spontaneous
  Country: US (occurrence: US)
  Receive Date: 20170517
  Receipt Date: 20170522
  Transmission Date: 20170830
  Serious: No
  Sender: FDA-Public Use
  Company Number: US-PFIZER INC-2016467642

PATIENT
  Age: 62 Year
  Sex: Female

DRUGS (10)
  1. LYRICA [Suspect]
     Active Substance: PREGABALIN
     Indication: DIABETES MELLITUS
     Dosage: 200 MG, 2X/DAY
  2. GLIPIZIDE. [Concomitant]
     Active Substance: GLIPIZIDE
     Dosage: UNK
  3. LYRICA [Suspect]
     Active Substance: PREGABALIN
     Indication: DIABETIC NEUROPATHY
  4. METFORMIN [Concomitant]
     Active Substance: METFORMIN HYDROCHLORIDE
     Dosage: UNK
  5. SIMVASTATIN. [Concomitant]
     Active Substance: SIMVASTATIN
     Dosage: UNK
  6. INVOKANA [Concomitant]
     Active Substance: CANAGLIFLOZIN
     Dosage: UNK
  7. NAPROXEN. [Concomitant]
     Active Substance: NAPROXEN
     Dosage: UNK
  8. METOPROLOL TARTRATE. [Concomitant]
     Active Substance: METOPROLOL TARTRATE
     Dosage: UNK
  9. JANUVIA [Concomitant]
     Active Substance: SITAGLIPTIN PHOSPHATE
     Dosage: UNK
  10. FENOFIBRATE. [Concomitant]
     Active Substance: FENOFIBRATE
     Dosage: UNK

REACTIONS (3)
  - Off label use [Unknown]
  - Drug hypersensitivity [Unknown]
  - Prescribed overdose [Unknown]
